FAERS Safety Report 13802216 (Version 2)
Quarter: 2017Q3

REPORT INFORMATION
  Report Type: Report from Study
  Country: US (occurrence: US)
  Receive Date: 20170727
  Receipt Date: 20170811
  Transmission Date: 20171127
  Serious: Yes (Hospitalization)
  Sender: FDA-Public Use
  Company Number: US-ACTELION-A-US2017-157185

PATIENT
  Age: 72 Year
  Sex: Female

DRUGS (1)
  1. OPSUMIT [Suspect]
     Active Substance: MACITENTAN
     Indication: PULMONARY ARTERIAL HYPERTENSION
     Dosage: 10 MG, QD
     Route: 048
     Dates: start: 201707, end: 201707

REACTIONS (13)
  - Cerebrovascular accident [Unknown]
  - Coordination abnormal [Recovered/Resolved]
  - Dysarthria [Recovered/Resolved]
  - Pulmonary hypertension [Not Recovered/Not Resolved]
  - Aphasia [Recovered/Resolved]
  - Dysphemia [Not Recovered/Not Resolved]
  - Feeling jittery [Recovered/Resolved]
  - Impaired driving ability [Not Recovered/Not Resolved]
  - Disturbance in attention [Recovered/Resolved]
  - Dyspnoea [Unknown]
  - Feeling abnormal [Recovered/Resolved]
  - Gait inability [Recovered/Resolved]
  - Feeling drunk [Recovered/Resolved]

NARRATIVE: CASE EVENT DATE: 201707
